FAERS Safety Report 10729970 (Version 5)
Quarter: 2015Q3

REPORT INFORMATION
  Report Type: Report from Study
  Country: US (occurrence: US)
  Receive Date: 20150122
  Receipt Date: 20150731
  Transmission Date: 20151125
  Serious: Yes (Hospitalization, Other)
  Sender: FDA-Public Use
  Company Number: US-ACTELION-A-NJ2014-110574

PATIENT
  Age: 69 Year
  Sex: Female

DRUGS (3)
  1. MACITENTAN [Suspect]
     Active Substance: MACITENTAN
     Indication: PULMONARY HYPERTENSION
     Dosage: 10 MG, QD
     Route: 048
  2. VENTAVIS [Suspect]
     Active Substance: ILOPROST
     Indication: PULMONARY HYPERTENSION
     Dosage: 5 MCG, 4-9 X/DAILY
     Route: 055
     Dates: start: 20090625
  3. ADCIRCA [Concomitant]
     Active Substance: TADALAFIL

REACTIONS (9)
  - Cardiac failure congestive [Recovering/Resolving]
  - Oedema peripheral [Recovering/Resolving]
  - Myopathy [Recovering/Resolving]
  - Insomnia [Unknown]
  - Drug dose omission [Unknown]
  - Extrasystoles [Unknown]
  - Fluid retention [Unknown]
  - Hypokinesia [Unknown]
  - Oedema [Unknown]

NARRATIVE: CASE EVENT DATE: 20141108
